FAERS Safety Report 5819855-9 (Version None)
Quarter: 2008Q3

REPORT INFORMATION
  Report Type: 
  Country: None (occurrence: None)
  Receive Date: 20080717
  Receipt Date: 20080708
  Transmission Date: 20090109
  Serious: Yes (Other)
  Sender: FDA-Public Use
  Company Number: 2007BI003234

PATIENT
  Age: 45 Year
  Sex: Male

DRUGS (4)
  1. TYSABRI [Suspect]
     Indication: MULTIPLE SCLEROSIS
     Dosage: 300 MG;QM;IV
     Route: 042
     Dates: start: 20050221, end: 20050221
  2. TYSABRI [Suspect]
     Indication: MULTIPLE SCLEROSIS
     Dosage: 300 MG;QM;IV
     Route: 042
     Dates: start: 20070109, end: 20070210
  3. AVONEX [Concomitant]
  4. TYSABRI [Suspect]

REACTIONS (10)
  - ARRHYTHMIA [None]
  - DRUG SPECIFIC ANTIBODY PRESENT [None]
  - HYPERSENSITIVITY [None]
  - INFUSION RELATED REACTION [None]
  - KERATITIS [None]
  - PRURITUS [None]
  - PYREXIA [None]
  - RASH [None]
  - RASH MACULAR [None]
  - URTICARIA [None]
